FAERS Safety Report 19430378 (Version 1)
Quarter: 2021Q2

REPORT INFORMATION
  Report Type: Spontaneous
  Country: GB (occurrence: GB)
  Receive Date: 20210617
  Receipt Date: 20210617
  Transmission Date: 20210717
  Serious: Yes (Other)
  Sender: FDA-Public Use
  Company Number: GB-MYLANLABS-2021M1035226

PATIENT
  Age: 55 Year
  Sex: Female

DRUGS (2)
  1. DIAZOXIDE [Suspect]
     Active Substance: DIAZOXIDE
     Indication: POSTPRANDIAL HYPOGLYCAEMIA
     Dosage: 50 MILLIGRAM, QD
     Route: 065
  2. ACARBOSE. [Suspect]
     Active Substance: ACARBOSE
     Indication: POSTPRANDIAL HYPOGLYCAEMIA
     Dosage: 50?100MG WITH MEALS
     Route: 065

REACTIONS (2)
  - Drug ineffective for unapproved indication [Unknown]
  - Off label use [Unknown]
